FAERS Safety Report 12395760 (Version 1)
Quarter: 2016Q2

REPORT INFORMATION
  Report Type: Spontaneous
  Country: US (occurrence: US)
  Receive Date: 20160523
  Receipt Date: 20160523
  Transmission Date: 20160815
  Serious: No
  Sender: FDA-Public Use
  Company Number: US-BANPHARM-20153849

PATIENT
  Age: 42 Year
  Sex: Female
  Weight: 90.72 kg

DRUGS (1)
  1. IBUPROFEN CAPSULES 200 MG [Suspect]
     Active Substance: IBUPROFEN
     Indication: NECK PAIN
     Dosage: 3 DF,
     Route: 048
     Dates: start: 20150426

REACTIONS (3)
  - Abdominal discomfort [Recovered/Resolved]
  - Product odour abnormal [Unknown]
  - Diarrhoea [Recovered/Resolved]

NARRATIVE: CASE EVENT DATE: 20150426
